FAERS Safety Report 7242701-6 (Version None)
Quarter: 2011Q1

REPORT INFORMATION
  Report Type: 
  Country: None (occurrence: None)
  Receive Date: 20110125
  Receipt Date: 20110121
  Transmission Date: 20110831
  Serious: Yes (Hospitalization)
  Sender: FDA-Public Use
  Company Number: SE-PFIZER INC-2009285516

PATIENT
  Age: 24 Year
  Sex: Female

DRUGS (5)
  1. PROPAVAN [Concomitant]
  2. ZOLPIDEM TARTRATE [Concomitant]
  3. ZELDOX [Suspect]
     Dosage: UNK
     Route: 048
     Dates: start: 20090911
  4. EFFEXOR [Suspect]
     Indication: DEPRESSION
     Dosage: 225 MG, 1X/DAY
     Route: 048
  5. DIAZEPAM [Concomitant]

REACTIONS (1)
  - MUSCLE SPASMS [None]
